FAERS Safety Report 25919061 (Version 3)
Quarter: 2025Q4

REPORT INFORMATION
  Report Type: Spontaneous
  Country: AR (occurrence: AR)
  Receive Date: 20251014
  Receipt Date: 20251202
  Transmission Date: 20260118
  Serious: Yes (Other)
  Sender: SANDOZ
  Company Number: AR-002147023-NVSC2025AR124894

PATIENT
  Age: 62 Year
  Sex: Female

DRUGS (4)
  1. FULVESTRANT [Suspect]
     Active Substance: FULVESTRANT
     Dosage: 2 DOSAGE FORM
     Route: 030
  2. FULVESTRANT [Suspect]
     Active Substance: FULVESTRANT
     Indication: Breast cancer metastatic
     Dosage: UNK, 28D (EVERY 28 DAYS), FORMULATION (SOLUTION FOR INFUSION)
     Route: 065
     Dates: start: 20241018
  3. KISQALI [Suspect]
     Active Substance: RIBOCICLIB SUCCINATE
     Indication: Breast cancer metastatic
     Dosage: 600 MG, QD (3 WEEKS OF TREATMENT, 1 WEEK RESTING)
     Route: 048
     Dates: start: 20241018, end: 202509
  4. ZOLEDRONIC ACID [Suspect]
     Active Substance: ZOLEDRONIC ACID
     Indication: Bone disorder
     Dosage: UNK UNK, Q3MO (START DATE: 1 YEARS AGO)
     Route: 042

REACTIONS (15)
  - Spinal cord compression [Unknown]
  - Gait disturbance [Unknown]
  - Feeling abnormal [Unknown]
  - Osteoarthritis [Unknown]
  - Coccydynia [Not Recovered/Not Resolved]
  - Injection site mass [Unknown]
  - Inflammation [Unknown]
  - Bursitis [Unknown]
  - Joint swelling [Unknown]
  - Nodule [Unknown]
  - Influenza [Recovered/Resolved]
  - Injection site pain [Not Recovered/Not Resolved]
  - Pain [Unknown]
  - Pain in extremity [Unknown]
  - Back pain [Unknown]

NARRATIVE: CASE EVENT DATE: 20250701
